FAERS Safety Report 21600385 (Version 1)
Quarter: 2022Q4

REPORT INFORMATION
  Report Type: Report from Study
  Country: US (occurrence: US)
  Receive Date: 20221116
  Receipt Date: 20221116
  Transmission Date: 20230112
  Serious: Yes (Other)
  Sender: FDA-Public Use
  Company Number: US-ABBVIE-4201241

PATIENT
  Age: 53 Year
  Sex: Female
  Weight: 91 kg

DRUGS (4)
  1. SKYRIZI [Suspect]
     Active Substance: RISANKIZUMAB-RZAA
     Indication: Psoriasis
     Dosage: STRENGTH 150 MILLIGRAM, WEEK 4
     Route: 058
     Dates: start: 20220707
  2. SKYRIZI [Suspect]
     Active Substance: RISANKIZUMAB-RZAA
     Dosage: STRENGTH 150 MILLIGRAM,
     Route: 058
     Dates: start: 2022
  3. IBRANCE [Concomitant]
     Active Substance: PALBOCICLIB
     Indication: Product used for unknown indication
     Dates: end: 202209
  4. IBRANCE [Concomitant]
     Active Substance: PALBOCICLIB
     Indication: Product used for unknown indication
     Dates: start: 20221030

REACTIONS (1)
  - Ear operation [Recovered/Resolved]

NARRATIVE: CASE EVENT DATE: 20220901
